FAERS Safety Report 7311501-0 (Version None)
Quarter: 2011Q1

REPORT INFORMATION
  Report Type: 
  Country: None (occurrence: None)
  Receive Date: 20110224
  Receipt Date: 20110214
  Transmission Date: 20110831
  Serious: Yes (Hospitalization)
  Sender: FDA-Public Use
  Company Number: PHHY2010JP89046

PATIENT
  Sex: Male
  Weight: 85 kg

DRUGS (11)
  1. ARTIST [Concomitant]
     Indication: HYPERTENSION
     Dosage: 20 MG
     Route: 048
  2. MEVALOTIN [Concomitant]
     Dosage: 10 MG
     Route: 048
     Dates: start: 20090628
  3. WARFARIN [Concomitant]
     Dosage: 3 MG
     Route: 048
     Dates: start: 20070620
  4. WARFARIN [Concomitant]
     Dosage: 2 MG
     Route: 048
  5. NORVASC [Concomitant]
     Indication: HYPERTENSION
     Dosage: 10 MG
     Route: 048
  6. WARFARIN [Concomitant]
     Dosage: 2.5 MG
     Route: 048
  7. BLOPRESS [Concomitant]
     Indication: HYPERTENSION
     Dosage: 8 MG
     Route: 048
     Dates: start: 20080110
  8. PLAVIX [Concomitant]
     Dosage: 75 MG
     Route: 048
     Dates: start: 20090628
  9. VALSARTAN [Suspect]
     Indication: HYPERTENSION
     Dosage: 80 MG, BID
     Route: 048
     Dates: start: 20080110
  10. ASPIRIN [Concomitant]
     Dosage: 200 MG
     Route: 048
  11. ASPIRIN [Concomitant]
     Dosage: 100 MG
     Route: 048

REACTIONS (3)
  - CHOLECYSTITIS ACUTE [None]
  - BILE DUCT STONE [None]
  - ANGINA UNSTABLE [None]
